FAERS Safety Report 14715414 (Version 1)
Quarter: 2018Q2

REPORT INFORMATION
  Report Type: Report from Study
  Country: US (occurrence: US)
  Receive Date: 20180404
  Receipt Date: 20180404
  Transmission Date: 20180711
  Serious: Yes (Hospitalization, Other)
  Sender: FDA-Public Use
  Company Number: US-JNJFOC-20171102620

PATIENT
  Age: 68 Year
  Sex: Male

DRUGS (9)
  1. IMBRUVICA [Suspect]
     Active Substance: IBRUTINIB
     Indication: CHRONIC LYMPHOCYTIC LEUKAEMIA
     Route: 048
     Dates: start: 20171023
  2. LACTULOSE. [Concomitant]
     Active Substance: LACTULOSE
  3. IMBRUVICA [Suspect]
     Active Substance: IBRUTINIB
     Indication: CHRONIC LYMPHOCYTIC LEUKAEMIA
     Route: 048
     Dates: start: 20170822
  4. IMBRUVICA [Suspect]
     Active Substance: IBRUTINIB
     Indication: RENAL CANCER
     Route: 048
     Dates: start: 20170822
  5. IMBRUVICA [Suspect]
     Active Substance: IBRUTINIB
     Indication: CHRONIC LYMPHOCYTIC LEUKAEMIA
     Route: 048
     Dates: start: 20171019, end: 20171218
  6. IMBRUVICA [Suspect]
     Active Substance: IBRUTINIB
     Indication: RENAL CANCER
     Route: 048
     Dates: start: 20171019, end: 20171218
  7. IMBRUVICA [Suspect]
     Active Substance: IBRUTINIB
     Indication: RENAL CANCER
     Route: 048
     Dates: start: 20171023
  8. IMBRUVICA [Suspect]
     Active Substance: IBRUTINIB
     Indication: CHRONIC LYMPHOCYTIC LEUKAEMIA
     Route: 048
     Dates: start: 20171021
  9. IMBRUVICA [Suspect]
     Active Substance: IBRUTINIB
     Indication: RENAL CANCER
     Route: 048
     Dates: start: 20171021

REACTIONS (18)
  - Asthenia [Not Recovered/Not Resolved]
  - Malaise [Recovering/Resolving]
  - Pneumonia [Unknown]
  - Immunodeficiency [Recovering/Resolving]
  - Cardiac arrest [Unknown]
  - Insomnia [Not Recovered/Not Resolved]
  - Fatigue [Not Recovered/Not Resolved]
  - Constipation [Recovering/Resolving]
  - Off label use [Unknown]
  - Arthralgia [Not Recovered/Not Resolved]
  - Weight decreased [Unknown]
  - Loss of consciousness [Unknown]
  - Bronchitis [Unknown]
  - Dyspepsia [Not Recovered/Not Resolved]
  - Decreased appetite [Not Recovered/Not Resolved]
  - Product use in unapproved indication [Unknown]
  - Dyspnoea exertional [Not Recovered/Not Resolved]
  - Musculoskeletal pain [Not Recovered/Not Resolved]

NARRATIVE: CASE EVENT DATE: 2017
